FAERS Safety Report 7647424-7 (Version None)
Quarter: 2011Q3

REPORT INFORMATION
  Report Type: 
  Country: None (occurrence: None)
  Receive Date: 20110729
  Receipt Date: 20110729
  Transmission Date: 20111222
  Serious: No
  Sender: FDA-Public Use
  Company Number: None

PATIENT
  Sex: Male
  Weight: 75 kg

DRUGS (1)
  1. DAPSONE [Suspect]
     Dosage: 100MG DAILY ORAL
     Route: 048
     Dates: start: 20091101

REACTIONS (2)
  - PRODUCT MEASURED POTENCY ISSUE [None]
  - PRODUCT PACKAGING ISSUE [None]
